FAERS Safety Report 7506244-4 (Version None)
Quarter: 2011Q2

REPORT INFORMATION
  Report Type: 
  Country: None (occurrence: None)
  Receive Date: 20110526
  Receipt Date: 20110107
  Transmission Date: 20111010
  Serious: Yes (Hospitalization)
  Sender: FDA-Public Use
  Company Number: PHHY2010US18474

PATIENT
  Sex: Male

DRUGS (2)
  1. EXJADE [Suspect]
     Indication: TRANSFUSION
     Dosage: 1250 MG, UNK
     Dates: start: 20100803
  2. EXJADE [Suspect]
     Indication: LYMPHOPROLIFERATIVE DISORDER
     Dosage: 1250 MG DAILY
     Route: 048
     Dates: start: 20090928

REACTIONS (1)
  - WOUND INFECTION [None]
